FAERS Safety Report 7547139-X (Version None)
Quarter: 2011Q2

REPORT INFORMATION
  Report Type: 
  Country: None (occurrence: None)
  Receive Date: 20110614
  Receipt Date: 20110603
  Transmission Date: 20111010
  Serious: Yes (Hospitalization)
  Sender: FDA-Public Use
  Company Number: PHHO2011US09943

PATIENT
  Sex: Female
  Weight: 48.9 kg

DRUGS (17)
  1. AFINITOR [Suspect]
     Indication: COLORECTAL CANCER
     Dosage: 10 MG, QD
     Route: 048
     Dates: start: 20110415, end: 20110602
  2. LEUCOVORIN CALCIUM [Concomitant]
  3. LORAZEPAM [Concomitant]
  4. PRILOCAINE HYDROCHLORIDE [Concomitant]
  5. AMBIEN [Concomitant]
  6. MS CONTIN [Concomitant]
  7. MEGACE [Concomitant]
  8. ZOFRAN [Concomitant]
  9. AVASTIN [Suspect]
     Indication: COLORECTAL CANCER
     Dosage: 5 MG/KG, EVERY 2 WEEKS
  10. SENNA-MINT WAF [Concomitant]
  11. COMPAZINE [Concomitant]
  12. LORTAB [Concomitant]
  13. LIDOCAINE [Concomitant]
  14. BISACODYL [Concomitant]
  15. FOLFOX-6 [Suspect]
     Dosage: UNK
     Dates: start: 20110415, end: 20110521
  16. FLUOROURACIL [Concomitant]
  17. ACETAMINOPHEN [Concomitant]

REACTIONS (1)
  - FEBRILE NEUTROPENIA [None]
